FAERS Safety Report 4728515-7 (Version None)
Quarter: 2005Q3

REPORT INFORMATION
  Report Type: 
  Country: None (occurrence: None)
  Receive Date: 20050729
  Receipt Date: 20050331
  Transmission Date: 20060218
  Serious: No
  Sender: FDA-Public Use
  Company Number: US-GLAXOSMITHKLINE-A0552124A

PATIENT
  Age: 65 Year
  Sex: Male

DRUGS (3)
  1. ZANTAC [Suspect]
     Dosage: 300MG TWICE PER DAY
     Route: 048
  2. VERAPAMIL [Concomitant]
  3. ENALAPRIL MALEATE [Concomitant]

REACTIONS (2)
  - DIZZINESS [None]
  - HYPERHIDROSIS [None]
